FAERS Safety Report 10923250 (Version 4)
Quarter: 2015Q2

REPORT INFORMATION
  Report Type: Spontaneous
  Country: US (occurrence: US)
  Receive Date: 20150317
  Receipt Date: 20150515
  Transmission Date: 20150821
  Serious: Yes (Other)
  Sender: FDA-Public Use
  Company Number: US-009507513-1503USA007200

PATIENT
  Sex: Female

DRUGS (3)
  1. NASONEX [Suspect]
     Active Substance: MOMETASONE FUROATE
     Indication: NASAL CONGESTION
     Dosage: 1 OR 2 SPRAYS UP TO TWICE DAILY IN EACH NOSTRIL
     Route: 045
  2. EFUDEX [Concomitant]
     Active Substance: FLUOROURACIL
     Indication: SKIN CANCER
     Dosage: 1 DF, BID
     Route: 061
     Dates: start: 20150130, end: 20150306
  3. NASONEX [Suspect]
     Active Substance: MOMETASONE FUROATE
     Indication: HYPERSENSITIVITY

REACTIONS (8)
  - Hypersensitivity [Recovered/Resolved]
  - Skin erosion [Recovered/Resolved]
  - Skin infection [Recovering/Resolving]
  - Skin cancer [Recovering/Resolving]
  - Wound secretion [Recovered/Resolved]
  - Emotional distress [Recovered/Resolved]
  - Drug administration error [Unknown]
  - Anxiety [Not Recovered/Not Resolved]

NARRATIVE: CASE EVENT DATE: 2015
